FAERS Safety Report 5019150-4 (Version None)
Quarter: 2006Q2

REPORT INFORMATION
  Report Type: 
  Country: None (occurrence: None)
  Receive Date: 20060531
  Receipt Date: 20060518
  Transmission Date: 20061013
  Serious: Yes (Death, Other)
  Sender: FDA-Public Use
  Company Number: 2005106354

PATIENT
  Age: 48 Year
  Sex: Female
  Weight: 58.9676 kg

DRUGS (2)
  1. DETROL LA [Suspect]
     Indication: INCONTINENCE
     Dosage: 4 MG (4 MG, 1 IN 1 D), ORAL
     Route: 048
     Dates: start: 20050712
  2. VALIUM [Concomitant]

REACTIONS (11)
  - ABDOMINAL PAIN [None]
  - ADENOCARCINOMA [None]
  - ASCITES [None]
  - CARDIAC FAILURE [None]
  - DRUG INEFFECTIVE [None]
  - HYPOTENSION [None]
  - OVARIAN CANCER METASTATIC [None]
  - PELVIC MASS [None]
  - PLEURAL EFFUSION [None]
  - POLLAKIURIA [None]
  - SOMNOLENCE [None]
